FAERS Safety Report 9904216 (Version 1)
Quarter: 2014Q1

REPORT INFORMATION
  Report Type: Other
  Country: ES (occurrence: ES)
  Receive Date: 20140218
  Receipt Date: 20140218
  Transmission Date: 20141002
  Serious: Yes (Hospitalization)
  Sender: FDA-Public Use
  Company Number: ES-ACTELION-A-CH2014-94938

PATIENT
  Age: 31 Year
  Sex: Female

DRUGS (4)
  1. TRACLEER [Suspect]
     Indication: PULMONARY ARTERIAL HYPERTENSION
     Dosage: UNK
     Route: 048
  2. TRACLEER [Suspect]
     Dosage: 250 MG, OD
     Route: 048
  3. ACENOCOUMAROL [Concomitant]
  4. EPOPROSTENOL [Concomitant]
     Route: 042

REACTIONS (5)
  - Premature rupture of membranes [Unknown]
  - Threatened labour [Unknown]
  - Caesarean section [Unknown]
  - Pregnancy [Unknown]
  - Live birth [Unknown]
